FAERS Safety Report 4581974-5 (Version None)
Quarter: 2005Q1

REPORT INFORMATION
  Report Type: 
  Country: None (occurrence: None)
  Receive Date: 20050119
  Receipt Date: 20040311
  Transmission Date: 20050727
  Serious: Yes (Other)
  Sender: FDA-Public Use
  Company Number: US-JNJFOC-20040204256

PATIENT
  Sex: Female

DRUGS (4)
  1. DOXIL [Suspect]
     Indication: DRUG USE FOR UNKNOWN INDICATION
     Dosage: INTRAVENOUS
     Route: 042
     Dates: start: 20040219, end: 20040219
  2. DECADRON [Concomitant]
  3. ANTIEMETIC (ANTIEMETICS AND ANTINAUSEANTS) [Concomitant]
  4. BENADRYL [Concomitant]

REACTIONS (1)
  - INFUSION RELATED REACTION [None]
